FAERS Safety Report 16210845 (Version 3)
Quarter: 2019Q2

REPORT INFORMATION
  Report Type: Report from Study
  Country: US (occurrence: US)
  Receive Date: 20190418
  Receipt Date: 20190618
  Transmission Date: 20190711
  Serious: Yes (Hospitalization, Other)
  Sender: FDA-Public Use
  Company Number: US-GILEAD-2019-0402967

PATIENT
  Age: 76 Year
  Sex: Female

DRUGS (3)
  1. AMBRISENTAN [Suspect]
     Active Substance: AMBRISENTAN
     Indication: PULMONARY HYPERTENSION
     Dosage: 10 MG, QD
     Route: 065
     Dates: start: 20190310
  2. UPTRAVI [Suspect]
     Active Substance: SELEXIPAG
     Indication: PULMONARY HYPERTENSION
     Dosage: 200 MG, BID
     Route: 065
  3. UPTRAVI [Suspect]
     Active Substance: SELEXIPAG
     Dosage: 1.6 MG, BID
     Route: 065
     Dates: start: 20190306

REACTIONS (5)
  - Intra-abdominal fluid collection [Unknown]
  - Abdominal pain upper [Unknown]
  - Fluid retention [Unknown]
  - Oedema peripheral [Unknown]
  - Product dose omission [Unknown]

NARRATIVE: CASE EVENT DATE: 20190412
